FAERS Safety Report 9001485 (Version 1)
Quarter: 2013Q1

REPORT INFORMATION
  Report Type: Spontaneous
  Country: FI (occurrence: FI)
  Receive Date: 20130107
  Receipt Date: 20130107
  Transmission Date: 20140127
  Serious: Yes (Other)
  Sender: FDA-Public Use
  Company Number: FI-ASTRAZENECA-2013SE00318

PATIENT
  Age: 24 Year
  Sex: Female

DRUGS (1)
  1. MARCAIN [Suspect]
     Indication: EPIDURAL ANAESTHESIA
     Route: 008
     Dates: start: 1998

REACTIONS (1)
  - Nerve injury [Unknown]
